FAERS Safety Report 9033020 (Version 2)
Quarter: 2013Q1

REPORT INFORMATION
  Report Type: Spontaneous
  Country: FR (occurrence: None)
  Receive Date: 20130110
  Receipt Date: 20130214
  Transmission Date: 20140127
  Serious: Yes (Hospitalization)
  Sender: FDA-Public Use
  Company Number: DKLU1087565

PATIENT
  Age: 86 Year
  Sex: Male

DRUGS (6)
  1. TRANXENE [Suspect]
     Indication: ABNORMAL BEHAVIOUR
     Route: 048
     Dates: end: 20121127
  2. RISPERIDONE (RISPERIDONE) [Suspect]
     Indication: ABNORMAL BEHAVIOUR
     Route: 048
     Dates: start: 201211, end: 20121127
  3. FUROSEMIDE (FUROSEMIDE) [Suspect]
     Indication: HYPERTENSION
     Route: 048
     Dates: end: 20121127
  4. HYPERIUM [Suspect]
     Indication: HYPERTENSION
     Route: 048
     Dates: end: 20121127
  5. ALLOPURINOL [Suspect]
     Indication: PRODUCT USED FOR UNKNOWN INDICATION
     Route: 048
     Dates: end: 20121127
  6. ALPRAZOLAM (ALPRAZOLAM) [Concomitant]

REACTIONS (6)
  - Disturbance in attention [None]
  - Confusional state [None]
  - Agitation [None]
  - Aggression [None]
  - Disorientation [None]
  - Abnormal behaviour [None]
